FAERS Safety Report 12693811 (Version 3)
Quarter: 2016Q4

REPORT INFORMATION
  Report Type: Spontaneous
  Country: AU (occurrence: AU)
  Receive Date: 20160829
  Receipt Date: 20161218
  Transmission Date: 20170207
  Serious: Yes (Hospitalization, Other)
  Sender: FDA-Public Use
  Company Number: AU-009507513-1608AUS013765

PATIENT
  Age: 67 Year
  Sex: Female

DRUGS (1)
  1. ALENDRONATE SODIUM. [Suspect]
     Active Substance: ALENDRONATE SODIUM
     Indication: OSTEOPOROSIS
     Dosage: UNK
     Route: 048

REACTIONS (3)
  - Joint dislocation [Recovering/Resolving]
  - Fractured sacrum [Recovering/Resolving]
  - Pubis fracture [Recovering/Resolving]
